FAERS Safety Report 7054221-2 (Version None)
Quarter: 2010Q4

REPORT INFORMATION
  Report Type: 
  Country: None (occurrence: None)
  Receive Date: 20101020
  Receipt Date: 20101006
  Transmission Date: 20110411
  Serious: Yes (Other)
  Sender: FDA-Public Use
  Company Number: PHHY2010DE38873

PATIENT
  Sex: Male
  Weight: 75 kg

DRUGS (2)
  1. DIOVAN HCT [Suspect]
     Indication: HYPERTENSION
     Dosage: 1 DF, QD
     Route: 048
     Dates: start: 20090101, end: 20100401
  2. NIFEHEXAL [Concomitant]
     Dosage: 10 MG, UNK

REACTIONS (10)
  - AURICULAR SWELLING [None]
  - BONE DISORDER [None]
  - DEAFNESS [None]
  - EAR DISORDER [None]
  - EAR PAIN [None]
  - FACIAL PAIN [None]
  - HEARING IMPAIRED [None]
  - OSTEITIS [None]
  - SWELLING FACE [None]
  - TINNITUS [None]
